FAERS Safety Report 4340435-9 (Version None)
Quarter: 2004Q2

REPORT INFORMATION
  Report Type: 
  Country: None (occurrence: None)
  Receive Date: 20040414
  Receipt Date: 20040330
  Transmission Date: 20050107
  Serious: Yes (Other)
  Sender: FDA-Public Use
  Company Number: MPS1-10198

PATIENT
  Age: 23 Month
  Sex: Female
  Weight: 12 kg

DRUGS (1)
  1. ALDURAZYME [Suspect]
     Indication: MUCOPOLYSACCHARIDOSIS IH
     Dosage: 1200 UNITS QWK IV
     Route: 042
     Dates: start: 20030711

REACTIONS (1)
  - BONE MARROW TRANSPLANT REJECTION [None]
